FAERS Safety Report 17757335 (Version 1)
Quarter: 2020Q2

REPORT INFORMATION
  Report Type: Spontaneous
  Country: US (occurrence: US)
  Receive Date: 20200507
  Receipt Date: 20200507
  Transmission Date: 20200714
  Serious: No
  Sender: FDA-Public Use
  Company Number: US-AMNEAL PHARMACEUTICALS-2019-AMRX-02080

PATIENT
  Age: 88 Year

DRUGS (1)
  1. DICLOFENAC SODIUM. [Suspect]
     Active Substance: DICLOFENAC SODIUM
     Indication: MUSCLE STRAIN
     Dosage: UNK
     Route: 065
     Dates: start: 20190915

REACTIONS (2)
  - Drug ineffective [Recovered/Resolved]
  - Application site reaction [Recovered/Resolved]

NARRATIVE: CASE EVENT DATE: 201909
